FAERS Safety Report 7391454-X (Version None)
Quarter: 2011Q2

REPORT INFORMATION
  Report Type: 
  Country: None (occurrence: None)
  Receive Date: 20110404
  Receipt Date: 20090414
  Transmission Date: 20111010
  Serious: Yes (Other)
  Sender: FDA-Public Use
  Company Number: US-BAYER-200922741NA

PATIENT
  Sex: Male
  Weight: 59 kg

DRUGS (18)
  1. HEPARIN SODIUM [Concomitant]
     Dosage: 3000 U, UNK
     Route: 042
     Dates: start: 20000809
  2. SODIUM NITROPRUSSIDE [Concomitant]
     Dosage: UNK
     Route: 042
     Dates: start: 20000729
  3. ZOCOR [Concomitant]
     Dosage: 20 MG, QD
     Route: 048
     Dates: start: 20000805
  4. METOPROLOL [Concomitant]
     Dosage: 100 MG, BID
     Route: 048
     Dates: start: 20000729
  5. FENOLDOPAM [Concomitant]
     Dosage: UNK
     Route: 042
     Dates: start: 20000801
  6. CLONIDINE [Concomitant]
     Dosage: 0.3 MG
     Route: 061
     Dates: start: 20000801
  7. LOVENOX [Concomitant]
     Dosage: 30 MG, BID
     Route: 058
     Dates: start: 20000805
  8. RED BLOOD CELLS [Concomitant]
  9. TRASYLOL [Suspect]
     Indication: CORONARY ARTERY BYPASS
     Route: 042
     Dates: start: 20000809
  10. ACETYLSALICYLIC ACID SRT [Concomitant]
  11. HYDRALAZINE HCL [Concomitant]
     Dosage: 20 MG EVERY 2 HOURS AS NEEDED
     Route: 042
     Dates: start: 20000729, end: 20000801
  12. PRAVACHOL [Concomitant]
     Dosage: UNK
     Route: 048
     Dates: start: 20000801
  13. HYTRIN [Concomitant]
     Dosage: 2 MG, BID
     Route: 048
     Dates: start: 19930101
  14. NITROGLYCERIN [Concomitant]
     Dosage: UNK
     Route: 061
     Dates: start: 20000729
  15. LASIX [Concomitant]
     Dosage: 20 MG, QD
     Route: 048
     Dates: start: 20000731
  16. NORVASC [Concomitant]
     Dosage: 10 MG, BID
     Route: 048
     Dates: start: 20000803
  17. IMDUR [Concomitant]
     Dosage: 120 MG, QD
     Route: 048
     Dates: start: 20000803
  18. LOTENSIN [Concomitant]
     Dosage: 20 MG, QD
     Route: 048
     Dates: start: 20000804

REACTIONS (12)
  - RENAL IMPAIRMENT [None]
  - STRESS [None]
  - ANHEDONIA [None]
  - FEAR [None]
  - ANXIETY [None]
  - INJURY [None]
  - PERIPHERAL VASCULAR DISORDER [None]
  - EMOTIONAL DISTRESS [None]
  - RENAL INJURY [None]
  - UNEVALUABLE EVENT [None]
  - PAIN [None]
  - RENAL FAILURE [None]
